FAERS Safety Report 12633363 (Version 2)
Quarter: 2016Q3

REPORT INFORMATION
  Report Type: Spontaneous
  Country: US (occurrence: US)
  Receive Date: 20160808
  Receipt Date: 20160808
  Transmission Date: 20161109
  Serious: No
  Sender: FDA-Public Use
  Company Number: US-BEH-2016060688

PATIENT
  Sex: Female
  Weight: 80 kg

DRUGS (29)
  1. HIZENTRA [Suspect]
     Active Substance: HUMAN IMMUNOGLOBULIN G
     Indication: IMMUNODEFICIENCY COMMON VARIABLE
     Route: 058
  2. AFRIN [Concomitant]
     Active Substance: OXYMETAZOLINE
  3. BENICAR [Concomitant]
     Active Substance: OLMESARTAN MEDOXOMIL
  4. HIZENTRA [Suspect]
     Active Substance: HUMAN IMMUNOGLOBULIN G
     Route: 058
  5. LANTUS [Concomitant]
     Active Substance: INSULIN GLARGINE
  6. B-6 [Concomitant]
  7. ACETAMINOPHEN. [Concomitant]
     Active Substance: ACETAMINOPHEN
  8. LIDOCAINE/PRILOCAINE [Concomitant]
     Active Substance: LIDOCAINE\PRILOCAINE
  9. EPIPEN [Concomitant]
     Active Substance: EPINEPHRINE
  10. ALLEGRA [Concomitant]
     Active Substance: FEXOFENADINE HYDROCHLORIDE
  11. PROCRIT [Concomitant]
     Active Substance: ERYTHROPOIETIN
  12. PREVACID [Concomitant]
     Active Substance: LANSOPRAZOLE
  13. POTASSIUM [Concomitant]
     Active Substance: POTASSIUM
  14. HIZENTRA [Suspect]
     Active Substance: HUMAN IMMUNOGLOBULIN G
     Route: 058
     Dates: start: 20100506
  15. OXYGEN. [Concomitant]
     Active Substance: OXYGEN
  16. CENTRUM SILVER [Concomitant]
     Active Substance: MINERALS\VITAMINS
  17. COUMADIN [Concomitant]
     Active Substance: WARFARIN SODIUM
  18. ADVAIR HFA [Concomitant]
     Active Substance: FLUTICASONE PROPIONATE\SALMETEROL XINAFOATE
  19. SPIRIVA [Concomitant]
     Active Substance: TIOTROPIUM BROMIDE MONOHYDRATE
  20. MUCINEX [Concomitant]
     Active Substance: GUAIFENESIN
  21. VITAMIN B COMPLEX [Concomitant]
     Active Substance: CYANOCOBALAMIN\DEXPANTHENOL\NIACINAMIDE\PYRIDOXINE HYDROCHLORIDE\RIBOFLAVIN 5^-PHOSPHATE SODIUM\THIAMINE HYDROCHLORIDE\VITAMIN B COMPLEX
  22. LASIX [Concomitant]
     Active Substance: FUROSEMIDE
  23. MIRALAX [Concomitant]
     Active Substance: POLYETHYLENE GLYCOL 3350
  24. ALBUTEROL. [Concomitant]
     Active Substance: ALBUTEROL
  25. DIPHENHYDRAMINE. [Concomitant]
     Active Substance: DIPHENHYDRAMINE
  26. CITRACAL [Concomitant]
     Active Substance: CALCIUM CITRATE
  27. LEVOXYL [Concomitant]
     Active Substance: LEVOTHYROXINE SODIUM
  28. HUMALOG [Concomitant]
     Active Substance: INSULIN LISPRO
  29. MAGOX [Concomitant]

REACTIONS (3)
  - Rhinorrhoea [Unknown]
  - Hypersensitivity [Unknown]
  - Sinus disorder [Unknown]
